FAERS Safety Report 7711847-8 (Version None)
Quarter: 2011Q3

REPORT INFORMATION
  Report Type: 
  Country: None (occurrence: None)
  Receive Date: 20110823
  Receipt Date: 20110809
  Transmission Date: 20111222
  Serious: Yes (Hospitalization, Disabling, Other)
  Sender: FDA-Public Use
  Company Number: 2010SP065476

PATIENT
  Age: 22 Year
  Sex: Female
  Weight: 68.0396 kg

DRUGS (1)
  1. NUVARING [Suspect]
     Indication: CONTRACEPTION
     Dates: start: 20040101, end: 20080101

REACTIONS (15)
  - SUPERIOR SAGITTAL SINUS THROMBOSIS [None]
  - CONVULSION [None]
  - GENITAL HERPES [None]
  - CERVICAL DYSPLASIA [None]
  - RECTAL POLYP [None]
  - ALCOHOLISM [None]
  - IMPAIRED DRIVING ABILITY [None]
  - DEEP VEIN THROMBOSIS [None]
  - DEHYDRATION [None]
  - MIGRAINE [None]
  - INFECTION [None]
  - IMPAIRED WORK ABILITY [None]
  - VISION BLURRED [None]
  - ENCEPHALITIS HERPES [None]
  - HUMAN PAPILLOMA VIRUS TEST POSITIVE [None]
